FAERS Safety Report 25941902 (Version 1)
Quarter: 2025Q4

REPORT INFORMATION
  Report Type: Spontaneous
  Country: US (occurrence: None)
  Receive Date: 20251020
  Receipt Date: 20251020
  Transmission Date: 20260118
  Serious: No
  Sender: FDA-CTU
  Company Number: None

PATIENT
  Sex: Male

DRUGS (2)
  1. OTEZLA [Suspect]
     Active Substance: APREMILAST
     Indication: Psoriasis
     Dosage: 30 MG TWICE A DAY ORAL
     Route: 048
     Dates: start: 20240419
  2. OTEZLA [Suspect]
     Active Substance: APREMILAST
     Indication: Dermatitis atopic

REACTIONS (5)
  - Psoriasis [None]
  - Condition aggravated [None]
  - Dermatitis atopic [None]
  - Myocardial infarction [None]
  - Therapy interrupted [None]
